FAERS Safety Report 22128555 (Version 2)
Quarter: 2023Q1

REPORT INFORMATION
  Report Type: Spontaneous
  Country: US (occurrence: US)
  Receive Date: 20230323
  Receipt Date: 20230323
  Transmission Date: 20230418
  Serious: No
  Sender: FDA-Public Use
  Company Number: US-ALLERGAN-2301379US

PATIENT
  Age: 16 Year
  Sex: Female

DRUGS (2)
  1. LINZESS [Suspect]
     Active Substance: LINACLOTIDE
     Indication: Dyspepsia
     Dosage: OCCASIONALLY 290 MCG (AROUND ONCE OR TWICE A WEEK), ONE PILL
     Route: 048
     Dates: start: 202203
  2. LINZESS [Suspect]
     Active Substance: LINACLOTIDE
     Indication: Dyspepsia
     Dosage: USUALLY 145 MCG, ONE PILL
     Dates: start: 202203

REACTIONS (1)
  - Off label use [Unknown]

NARRATIVE: CASE EVENT DATE: 20220301
